FAERS Safety Report 15794080 (Version 4)
Quarter: 2021Q2

REPORT INFORMATION
  Report Type: Other
  Country: US (occurrence: US)
  Receive Date: 20190107
  Receipt Date: 20210603
  Transmission Date: 20210716
  Serious: Yes (Other)
  Sender: FDA-Public Use
  Company Number: US-ROCHE-2240579

PATIENT
  Age: 58 Year
  Sex: Female
  Weight: 72.64 kg

DRUGS (5)
  1. OCREVUS [Suspect]
     Active Substance: OCRELIZUMAB
     Route: 042
     Dates: start: 2016
  2. OCREVUS [Suspect]
     Active Substance: OCRELIZUMAB
     Indication: RELAPSING MULTIPLE SCLEROSIS
     Route: 065
     Dates: start: 20181130
  3. OCREVUS [Suspect]
     Active Substance: OCRELIZUMAB
     Route: 065
     Dates: start: 201811
  4. RITUXAN [Suspect]
     Active Substance: RITUXIMAB
     Indication: MULTIPLE SCLEROSIS
     Route: 042
  5. RITUXAN [Suspect]
     Active Substance: RITUXIMAB
     Dosage: 1 INFUSION
     Route: 042

REACTIONS (23)
  - Muscular weakness [Not Recovered/Not Resolved]
  - Dental caries [Not Recovered/Not Resolved]
  - Muscle spasticity [Recovering/Resolving]
  - Muscle rupture [Not Recovered/Not Resolved]
  - Sleep deficit [Unknown]
  - Nail growth abnormal [Not Recovered/Not Resolved]
  - Multiple sclerosis relapse [Unknown]
  - Fatigue [Unknown]
  - Hallucination [Recovered/Resolved]
  - Hair growth abnormal [Recovered/Resolved]
  - Urinary tract infection [Unknown]
  - Trismus [Not Recovered/Not Resolved]
  - Disorientation [Recovered/Resolved]
  - Hair growth abnormal [Not Recovered/Not Resolved]
  - Off label use [Unknown]
  - Fall [Unknown]
  - Depression [Unknown]
  - Neuralgia [Unknown]
  - Papilloma viral infection [Unknown]
  - Basedow^s disease [Unknown]
  - Skin laceration [Unknown]
  - Hair texture abnormal [Not Recovered/Not Resolved]
  - Anxiety [Recovered/Resolved]

NARRATIVE: CASE EVENT DATE: 2016
